FAERS Safety Report 17335173 (Version 2)
Quarter: 2020Q3

REPORT INFORMATION
  Report Type: Spontaneous
  Country: US (occurrence: US)
  Receive Date: 20200128
  Receipt Date: 20200814
  Transmission Date: 20201102
  Serious: Yes (Hospitalization, Other)
  Sender: FDA-Public Use
  Company Number: US-SA-2019SA327937

PATIENT

DRUGS (2)
  1. DUPIXENT [Suspect]
     Active Substance: DUPILUMAB
     Indication: ASTHMA
     Dosage: UNK, 1X, LOADING DOSE,
     Route: 058
     Dates: start: 201911, end: 201911
  2. DUPIXENT [Suspect]
     Active Substance: DUPILUMAB
     Dosage: 300 MG
     Route: 058
     Dates: start: 20191114

REACTIONS (3)
  - Dyspnoea [Unknown]
  - Sinus congestion [Unknown]
  - Emergency care [Unknown]

NARRATIVE: CASE EVENT DATE: 20191114
